FAERS Safety Report 8742103 (Version 2)
Quarter: 2012Q4

REPORT INFORMATION
  Report Type: 
  Country: FR (occurrence: FR)
  Receive Date: 20120824
  Receipt Date: 20120829
  Transmission Date: 20130627
  Serious: Yes (Death, Hospitalization, Other)
  Sender: FDA-Public Use
  Company Number: FR-PFIZER INC-2012205969

PATIENT
  Age: 57 Year
  Sex: Male

DRUGS (9)
  1. CORDARONE [Suspect]
     Dosage: 200 mg, one tablet, 5 days per week
     Route: 048
  2. BISOPROLOL FUMARATE [Interacting]
     Dosage: 10 mg, Daily
     Route: 048
  3. AMISULPRIDE [Interacting]
     Dosage: 100 mg, 1 tablet daily
     Route: 048
     Dates: start: 2007, end: 201207
  4. INSPRA [Concomitant]
     Dosage: UNK
  5. FUROSEMIDE [Concomitant]
     Dosage: UNK
  6. DEROXAT [Concomitant]
     Dosage: UNK
  7. PLAVIX [Concomitant]
     Dosage: UNK
  8. SIMVASTATIN [Concomitant]
     Dosage: UNK
  9. XANAX [Concomitant]
     Dosage: UNK

REACTIONS (11)
  - Drug interaction [Fatal]
  - Torsade de pointes [Fatal]
  - Atrial fibrillation [Fatal]
  - Cardio-respiratory arrest [Fatal]
  - Cardiac failure congestive [Unknown]
  - Sepsis [Unknown]
  - Hepatic function abnormal [Unknown]
  - Hyponatraemia [Unknown]
  - Hyperkalaemia [Unknown]
  - Decubitus ulcer [Unknown]
  - Polycythaemia [Unknown]
